FAERS Safety Report 12672216 (Version 1)
Quarter: 2016Q3

REPORT INFORMATION
  Report Type: Spontaneous
  Country: US (occurrence: US)
  Receive Date: 20160822
  Receipt Date: 20160822
  Transmission Date: 20161109
  Serious: Yes (Death, Congenital Anomaly, Other)
  Sender: FDA-Public Use
  Company Number: PHHY2015US129714

PATIENT
  Sex: Female

DRUGS (2)
  1. ZOFRAN [Suspect]
     Active Substance: ONDANSETRON HYDROCHLORIDE
     Indication: FOETAL EXPOSURE DURING PREGNANCY
     Dosage: UNK
     Route: 064
  2. ZOFRAN [Suspect]
     Active Substance: ONDANSETRON HYDROCHLORIDE
     Indication: FOETAL EXPOSURE DURING PREGNANCY
     Dosage: UNK
     Route: 064

REACTIONS (8)
  - Atrioventricular block complete [Unknown]
  - Ascites [Unknown]
  - Atrioventricular septal defect [Unknown]
  - Congenital aortic valve incompetence [Unknown]
  - Foetal exposure during pregnancy [Unknown]
  - Cardiac failure [Unknown]
  - Death neonatal [Fatal]
  - Heterotaxia [Unknown]

NARRATIVE: CASE EVENT DATE: 20140907
